FAERS Safety Report 6867774-1 (Version None)
Quarter: 2010Q3

REPORT INFORMATION
  Report Type: 
  Country: None (occurrence: None)
  Receive Date: 20100722
  Receipt Date: 20100714
  Transmission Date: 20110219
  Serious: Yes (Hospitalization)
  Sender: FDA-Public Use
  Company Number: AT-SANOFI-AVENTIS-2010SA015217

PATIENT
  Age: 74 Year
  Sex: Female

DRUGS (3)
  1. MULTAQ [Suspect]
     Indication: ATRIAL FIBRILLATION
     Route: 048
     Dates: start: 20100228, end: 20100308
  2. MARCUMAR [Concomitant]
     Indication: THROMBOSIS PROPHYLAXIS
     Route: 048
  3. ALL OTHER THERAPEUTIC PRODUCTS [Concomitant]
     Route: 048

REACTIONS (2)
  - CARDIAC FAILURE [None]
  - OEDEMA PERIPHERAL [None]
